FAERS Safety Report 11078365 (Version 1)
Quarter: 2015Q2

REPORT INFORMATION
  Report Type: Spontaneous
  Country: FR (occurrence: None)
  Receive Date: 20150428
  Receipt Date: 20150428
  Transmission Date: 20150821
  Serious: Yes (Other)
  Sender: FDA-Public Use
  Company Number: 2015SA049972

PATIENT
  Age: 71 Year
  Sex: Female

DRUGS (1)
  1. PLAQUENIL [Suspect]
     Active Substance: HYDROXYCHLOROQUINE SULFATE
     Indication: RHEUMATOID ARTHRITIS
     Dosage: 2 DOSAGE FORM; TABLET
     Route: 048
     Dates: start: 200501, end: 201303

REACTIONS (1)
  - Maculopathy [None]

NARRATIVE: CASE EVENT DATE: 201401
